FAERS Safety Report 23049775 (Version 1)
Quarter: 2023Q4

REPORT INFORMATION
  Report Type: Spontaneous
  Country: US (occurrence: None)
  Receive Date: 20231007
  Receipt Date: 20231007
  Transmission Date: 20240110
  Serious: Yes (Other)
  Sender: FDA-Public Use
  Company Number: None

PATIENT
  Age: 68 Year
  Sex: Female

DRUGS (1)
  1. MOUNJARO [Suspect]
     Active Substance: TIRZEPATIDE

REACTIONS (7)
  - Constipation [None]
  - Lymph node pain [None]
  - Breast pain [None]
  - Pain [None]
  - Neck pain [None]
  - Neck mass [None]
  - Hallucination [None]

NARRATIVE: CASE EVENT DATE: 20231006
